FAERS Safety Report 18044570 (Version 2)
Quarter: 2020Q3

REPORT INFORMATION
  Report Type: Report from Study
  Country: IN (occurrence: IN)
  Receive Date: 20200720
  Receipt Date: 20200730
  Transmission Date: 20201103
  Serious: Yes (Death, Life-Threatening, Hospitalization)
  Sender: FDA-Public Use
  Company Number: IN-PFIZER INC-2020274695

PATIENT
  Age: 66 Year
  Sex: Male
  Weight: 65 kg

DRUGS (1)
  1. DACOMITINIB [Suspect]
     Active Substance: DACOMITINIB
     Indication: NON-SMALL CELL LUNG CANCER
     Dosage: 45 MG, 1X/DAY
     Route: 048
     Dates: start: 20190820, end: 20200327

REACTIONS (1)
  - Lower respiratory tract infection [Fatal]
